FAERS Safety Report 11703818 (Version 2)
Quarter: 2016Q1

REPORT INFORMATION
  Report Type: Spontaneous
  Country: VE (occurrence: VE)
  Receive Date: 20151106
  Receipt Date: 20160229
  Transmission Date: 20160525
  Serious: Yes (Hospitalization, Other)
  Sender: FDA-Public Use
  Company Number: VE-ORION CORPORATION ORION PHARMA-ENTC2015-0627

PATIENT
  Sex: Male

DRUGS (5)
  1. STALEVO [Suspect]
     Active Substance: CARBIDOPA\ENTACAPONE\LEVODOPA
     Indication: PARKINSON^S DISEASE
     Route: 048
     Dates: start: 201401, end: 201510
  2. SECOTEX [Concomitant]
     Active Substance: TAMSULOSIN
     Route: 065
  3. MIRAPEX [Concomitant]
     Active Substance: PRAMIPEXOLE DIHYDROCHLORIDE
     Route: 065
  4. SINEMET [Concomitant]
     Active Substance: CARBIDOPA\LEVODOPA
     Route: 065
  5. ATACAND [Concomitant]
     Active Substance: CANDESARTAN CILEXETIL
     Route: 065

REACTIONS (12)
  - Feeling abnormal [Unknown]
  - Locked-in syndrome [Unknown]
  - Eating disorder [Unknown]
  - Mastication disorder [Unknown]
  - Rib fracture [Unknown]
  - Feeling of despair [Unknown]
  - Fall [Unknown]
  - Abasia [Unknown]
  - Anxiety [Unknown]
  - Muscle spasms [Unknown]
  - Product supply issue [Unknown]
  - Musculoskeletal stiffness [Unknown]

NARRATIVE: CASE EVENT DATE: 201510
